FAERS Safety Report 24872253 (Version 1)
Quarter: 2025Q1

REPORT INFORMATION
  Report Type: Spontaneous
  Country: NL (occurrence: NL)
  Receive Date: 20250122
  Receipt Date: 20250122
  Transmission Date: 20250409
  Serious: Yes (Other)
  Sender: AUROBINDO
  Company Number: NL-LRB-01005626

PATIENT
  Age: 66 Year
  Sex: Male
  Weight: 70 kg

DRUGS (1)
  1. ISOTRETINOIN [Suspect]
     Active Substance: ISOTRETINOIN
     Indication: Morbihan disease
     Dosage: 10 MILLIGRAM, ONCE A DAY (1 X PER DAG 1 TABLET)
     Route: 065
     Dates: start: 20230824, end: 20230905

REACTIONS (2)
  - Retinal neovascularisation [Recovered/Resolved]
  - Neovascularisation [Recovering/Resolving]
